FAERS Safety Report 15371005 (Version 1)
Quarter: 2018Q3

REPORT INFORMATION
  Report Type: Report from Study
  Country: IT (occurrence: IT)
  Receive Date: 20180911
  Receipt Date: 20180911
  Transmission Date: 20181010
  Serious: Yes (Other)
  Sender: FDA-Public Use
  Company Number: IT-GLAXOSMITHKLINE-IT2018159261

PATIENT
  Age: 60 Year
  Sex: Male

DRUGS (2)
  1. DELTACORTENE [Suspect]
     Active Substance: PREDNISONE
     Indication: OEDEMA PERIPHERAL
     Dosage: 1 DF, QD
     Route: 048
  2. DICLOFENAC SODIUM. [Suspect]
     Active Substance: DICLOFENAC SODIUM
     Indication: BACK PAIN
     Dosage: AS NECESSARY
     Route: 048
     Dates: start: 20180813, end: 20180819

REACTIONS (2)
  - Rash generalised [Recovering/Resolving]
  - Overdose [Recovering/Resolving]

NARRATIVE: CASE EVENT DATE: 20180813
